FAERS Safety Report 5659578-2 (Version None)
Quarter: 2008Q1

REPORT INFORMATION
  Report Type: 
  Country: None (occurrence: None)
  Receive Date: 20080306
  Receipt Date: 20080219
  Transmission Date: 20080703
  Serious: Yes (Hospitalization)
  Sender: FDA-Public Use
  Company Number: A-NJ2007-18548

PATIENT
  Age: 44 Year
  Sex: Female

DRUGS (15)
  1. TRACLEER [Suspect]
     Indication: PULMONARY HYPERTENSION
     Dosage: 125 MG,BID,ORAL
     Route: 048
     Dates: start: 20060601
  2. METOLAZONE [Concomitant]
  3. PROTONIX [Concomitant]
  4. LORTAB [Concomitant]
  5. POTASSIUM CHLORIDE [Concomitant]
  6. PHENERGAN HCL [Concomitant]
  7. COLACE (DOCUSATE SODIUM) [Concomitant]
  8. PAXIL [Concomitant]
  9. TRAMADOL (TRAMODOL) [Concomitant]
  10. XANAX [Concomitant]
  11. SPIRONOLACTONE [Concomitant]
  12. LASIX [Concomitant]
  13. AMBIEN [Concomitant]
  14. CLARITIN (LORATDINE) [Concomitant]
  15. FELODIPINE [Concomitant]

REACTIONS (21)
  - ALANINE AMINOTRANSFERASE INCREASED [None]
  - ANAEMIA [None]
  - ASPARTATE AMINOTRANSFERASE INCREASED [None]
  - DISEASE PROGRESSION [None]
  - DYSPNOEA [None]
  - EAR PAIN [None]
  - ELECTROLYTE IMBALANCE [None]
  - GENERALISED OEDEMA [None]
  - HEADACHE [None]
  - HYPOKALAEMIA [None]
  - HYPONATRAEMIA [None]
  - HYPOXIA [None]
  - LOSS OF CONSCIOUSNESS [None]
  - NAUSEA [None]
  - OEDEMA [None]
  - PULMONARY HYPERTENSION [None]
  - RECTAL HAEMORRHAGE [None]
  - RENAL IMPAIRMENT [None]
  - SINUS CONGESTION [None]
  - SWELLING [None]
  - VOMITING [None]
